FAERS Safety Report 15631071 (Version 1)
Quarter: 2018Q4

REPORT INFORMATION
  Report Type: Spontaneous
  Country: US (occurrence: US)
  Receive Date: 20181113
  Receipt Date: 20181113
  Transmission Date: 20190205
  Serious: No
  Sender: FDA-Public Use
  Company Number: None

PATIENT
  Age: 71 Year
  Sex: Male
  Weight: 85.5 kg

DRUGS (8)
  1. VITAMIN D [Concomitant]
     Active Substance: CHOLECALCIFEROL
  2. VITAMIN C [Concomitant]
     Active Substance: ASCORBIC ACID
  3. LISINIPRIL [Concomitant]
     Active Substance: LISINOPRIL
  4. MK7 VITAMINS [Concomitant]
  5. PRALUENT [Suspect]
     Active Substance: ALIROCUMAB
     Indication: BLOOD CHOLESTEROL INCREASED
     Dosage: ?          QUANTITY:2 INJECTION(S);OTHER FREQUENCY:EVERY 14 DAYS;?
     Route: 030
     Dates: start: 20180516, end: 20181028
  6. LEVOTHYROXIN [Concomitant]
     Active Substance: LEVOTHYROXINE
  7. VITAMIN A [Concomitant]
     Active Substance: VITAMIN A
  8. VITAMIN E [Concomitant]
     Active Substance: .ALPHA.-TOCOPHEROL

REACTIONS (10)
  - Thyroid disorder [None]
  - Ocular hyperaemia [None]
  - Eye irritation [None]
  - Condition aggravated [None]
  - Asthenia [None]
  - Immune system disorder [None]
  - Fatigue [None]
  - Pain [None]
  - Influenza like illness [None]
  - Feeling abnormal [None]

NARRATIVE: CASE EVENT DATE: 20181026
